FAERS Safety Report 9540538 (Version 1)
Quarter: 2013Q3

REPORT INFORMATION
  Report Type: Spontaneous
  Country: US (occurrence: US)
  Receive Date: 20130920
  Receipt Date: 20130920
  Transmission Date: 20140515
  Serious: Yes (Disabling, Other)
  Sender: FDA-Public Use
  Company Number: US-PFIZER INC-2013267193

PATIENT
  Age: 74 Year
  Sex: Female

DRUGS (1)
  1. GLIPIZIDE XL [Suspect]
     Dosage: 2.5 MG, UNK

REACTIONS (9)
  - Abasia [Unknown]
  - Renal disorder [Unknown]
  - Malaise [Unknown]
  - Crying [Unknown]
  - Arthropathy [Unknown]
  - Limb discomfort [Unknown]
  - Dysstasia [Unknown]
  - Asthenia [Unknown]
  - Activities of daily living impaired [Unknown]
